FAERS Safety Report 4881480-4 (Version None)
Quarter: 2005Q4

REPORT INFORMATION
  Report Type: 
  Country: None (occurrence: None)
  Receive Date: 20051209
  Receipt Date: 20050712
  Transmission Date: 20060501
  Serious: Yes (Other)
  Sender: FDA-Public Use
  Company Number: USA-2005-0020746

PATIENT
  Age: 44 Year
  Sex: Male

DRUGS (1)
  1. OXYCONTIN [Suspect]
     Indication: PAIN
     Dosage: 10 MG, BID
     Dates: start: 20030101

REACTIONS (4)
  - CONFUSIONAL STATE [None]
  - DRUG DEPENDENCE [None]
  - INADEQUATE ANALGESIA [None]
  - MEDICATION ERROR [None]
